FAERS Safety Report 8759724 (Version 2)
Quarter: 2012Q4

REPORT INFORMATION
  Report Type: 
  Country: US (occurrence: US)
  Receive Date: 20120829
  Receipt Date: 20121025
  Transmission Date: 20130627
  Serious: Yes (Hospitalization)
  Sender: FDA-Public Use
  Company Number: US-ASTRAZENECA-2012SE60675

PATIENT
  Age: 85 Year
  Sex: Female

DRUGS (5)
  1. CRESTOR [Suspect]
     Route: 048
  2. INSULIN HUMILIN [Concomitant]
     Dosage: 42 UNIT AM AND 28 UNIT PM
  3. AMLODIPINE [Concomitant]
  4. ASPIRIN [Concomitant]
  5. LEVOTHYROXIN [Concomitant]

REACTIONS (2)
  - Hypoglycaemia [Unknown]
  - Bradycardia [Unknown]
